FAERS Safety Report 6366449-5 (Version None)
Quarter: 2009Q3

REPORT INFORMATION
  Report Type: 
  Country: None (occurrence: None)
  Receive Date: 20090921
  Receipt Date: 20090910
  Transmission Date: 20100115
  Serious: Yes (Hospitalization)
  Sender: FDA-Public Use
  Company Number: EC-ROCHE-656109

PATIENT
  Age: 47 Year
  Sex: Female

DRUGS (1)
  1. XENICAL [Suspect]
     Dosage: DOSE, FREQUENCY, START DATE, STOP DATE AND BATCH NUMBER : UNKNOWN
     Route: 048

REACTIONS (1)
  - DENGUE FEVER [None]
